FAERS Safety Report 16416926 (Version 2)
Quarter: 2019Q2

REPORT INFORMATION
  Report Type: Report from Study
  Country: IE (occurrence: IE)
  Receive Date: 20190611
  Receipt Date: 20190614
  Transmission Date: 20190711
  Serious: Yes (Hospitalization)
  Sender: FDA-Public Use
  Company Number: IE-PFIZER INC-2019243633

PATIENT
  Weight: 60.4 kg

DRUGS (21)
  1. TAZOCIN [Concomitant]
     Active Substance: PIPERACILLIN SODIUM\TAZOBACTAM SODIUM
     Indication: INFECTION
     Dosage: 4.5 MG, 4X/DAY
     Dates: start: 20181130, end: 20181212
  2. ONDANSETRON [Concomitant]
     Active Substance: ONDANSETRON
     Indication: VOMITING
  3. LEVOMEPROMAZINE [Concomitant]
     Active Substance: LEVOMEPROMAZINE
     Indication: VOMITING
  4. COTRIMOXAZOLE [Concomitant]
     Active Substance: SULFAMETHOXAZOLE\TRIMETHOPRIM
     Indication: INFECTION
     Dosage: 960 MG, 2X/DAY
     Dates: start: 20181124, end: 20181202
  5. LEVOMEPROMAZINE [Concomitant]
     Active Substance: LEVOMEPROMAZINE
     Indication: NAUSEA
     Dosage: 3 MG, 2X/DAY
     Dates: start: 20181123, end: 20181202
  6. BENADRYL [Concomitant]
     Active Substance: DIPHENHYDRAMINE HYDROCHLORIDE
     Indication: MUCOSAL INFLAMMATION
     Dosage: 10 ML, 4X/DAY
     Dates: start: 20181208, end: 20181212
  7. MAALOX [ALGELDRATE;MAGNESIUM HYDROXIDE] [Concomitant]
     Active Substance: ALGELDRATE\MAGNESIUM HYDROXIDE
     Indication: MUCOSAL INFLAMMATION
     Dosage: 10 ML, 4X/DAY
     Dates: start: 20181208, end: 20181212
  8. GEMTUZUMAB OZOGAMICIN [Suspect]
     Active Substance: GEMTUZUMAB OZOGAMICIN
     Dosage: 5 MG, UNK
     Route: 042
     Dates: start: 20181123, end: 20181123
  9. VORICONAZOLE. [Concomitant]
     Active Substance: VORICONAZOLE
     Indication: ANTIFUNGAL TREATMENT
     Dosage: 200 MG, 2X/DAY
     Dates: start: 20181130, end: 20181212
  10. GENTAMICIN. [Concomitant]
     Active Substance: GENTAMICIN
     Indication: INFECTION
     Dosage: 420 MG, DAILY
     Dates: start: 20181130, end: 20181201
  11. GENTAMICIN. [Concomitant]
     Active Substance: GENTAMICIN
     Dosage: 385 MG, 1X/DAY
     Dates: start: 20181207, end: 20181207
  12. ORAMORPH [Concomitant]
     Active Substance: MORPHINE SULFATE
     Indication: ANALGESIC THERAPY
     Dosage: 10 MG, EVERY 4 HOURS
     Dates: start: 20181208, end: 20181208
  13. PARACETAMOL [Concomitant]
     Active Substance: ACETAMINOPHEN
     Dosage: 1 G, AS NEEDED
     Dates: start: 20181202, end: 20181212
  14. MITOXANTRONE HCL [Suspect]
     Active Substance: MITOXANTRONE HYDROCHLORIDE
     Dosage: 20 MG/M2, 1X/DAY
     Route: 042
     Dates: start: 20181121, end: 20181121
  15. COTRIMOXAZOLE [Concomitant]
     Active Substance: SULFAMETHOXAZOLE\TRIMETHOPRIM
     Dosage: 960 MG, 2X/DAY
     Dates: start: 20181208, end: 20181209
  16. TRANEXAMIC ACID. [Concomitant]
     Active Substance: TRANEXAMIC ACID
     Indication: HAEMORRHAGE
     Dosage: 1 G, 3X/DAY
     Dates: start: 20181208, end: 20181212
  17. XYLOCAINE #1 [Concomitant]
     Active Substance: LIDOCAINE
     Indication: MUCOSAL INFLAMMATION
     Dosage: 10 ML, 4X/DAY
     Dates: start: 20181208, end: 20181212
  18. OMEPRAZOLE. [Concomitant]
     Active Substance: OMEPRAZOLE
     Indication: GASTROOESOPHAGEAL REFLUX DISEASE
     Dosage: 20 MG, DAILY
     Dates: start: 20181202, end: 20181205
  19. ONDANSETRON [Concomitant]
     Active Substance: ONDANSETRON
     Indication: NAUSEA
     Dosage: 8 MG, 3X/DAY
     Dates: start: 20181127, end: 20181203
  20. PARACETAMOL [Concomitant]
     Active Substance: ACETAMINOPHEN
     Indication: ANALGESIC THERAPY
     Dosage: 1 G, AS NEEDED
     Dates: start: 20181118, end: 20181202
  21. WARFARIN [Concomitant]
     Active Substance: WARFARIN
     Indication: ANTICOAGULANT THERAPY
     Dosage: 2 ML, AS NEEDED
     Dates: start: 20181207, end: 20181209

REACTIONS (1)
  - Febrile neutropenia [Recovered/Resolved]

NARRATIVE: CASE EVENT DATE: 20181214
